FAERS Safety Report 8049485-2 (Version None)
Quarter: 2012Q1

REPORT INFORMATION
  Report Type: 
  Country: None (occurrence: None)
  Receive Date: 20120117
  Receipt Date: 20120112
  Transmission Date: 20120608
  Serious: Yes (Other)
  Sender: FDA-Public Use
  Company Number: US-PFIZER INC-2012010839

PATIENT
  Sex: Female
  Weight: 107 kg

DRUGS (7)
  1. FISH OIL [Concomitant]
     Dosage: 1000 MG, DAILY
  2. CELEBREX [Suspect]
     Indication: SPINAL OSTEOARTHRITIS
  3. VITAMIN C [Concomitant]
     Dosage: UNK, DAILY
  4. LITHIUM [Concomitant]
     Indication: BIPOLAR DISORDER
  5. TOPROL-XL [Concomitant]
     Indication: CARDIAC DISORDER
     Dosage: 100 MG, DAILY
  6. LITHIUM [Concomitant]
     Indication: DEPRESSION
     Dosage: 300 MG, 2X/DAY
  7. CELEBREX [Suspect]
     Indication: OSTEOARTHRITIS
     Dosage: 200 MG, DAILY
     Route: 048

REACTIONS (1)
  - BASEDOW'S DISEASE [None]
